FAERS Safety Report 22646458 (Version 2)
Quarter: 2024Q2

REPORT INFORMATION
  Report Type: Report from Study
  Country: US (occurrence: US)
  Receive Date: 20230627
  Receipt Date: 20240502
  Transmission Date: 20240716
  Serious: Yes (Other)
  Sender: FDA-Public Use
  Company Number: US-ABBVIE-5305475

PATIENT
  Sex: Female

DRUGS (1)
  1. LUPRON [Suspect]
     Active Substance: LEUPROLIDE ACETATE
     Indication: Product used for unknown indication
     Route: 065
     Dates: start: 2003

REACTIONS (6)
  - Hysterectomy [Unknown]
  - Trigger finger [Unknown]
  - Alopecia [Unknown]
  - Tooth loss [Unknown]
  - Diabetes mellitus [Unknown]
  - Multi-organ disorder [Unknown]
